FAERS Safety Report 4764228-3 (Version None)
Quarter: 2005Q3

REPORT INFORMATION
  Report Type: 
  Country: None (occurrence: None)
  Receive Date: 20050907
  Receipt Date: 20050907
  Transmission Date: 20060218
  Serious: Yes (Life-Threatening)
  Sender: FDA-Public Use
  Company Number: None

PATIENT

DRUGS (2)
  1. VANTAS [Suspect]
     Indication: PROSTATE CANCER
     Dosage: ONE VIAL IN THE ARM ANNUALLY
     Dates: start: 20050614, end: 20050630
  2. VANTAS [Suspect]
     Indication: PROSTATIC SPECIFIC ANTIGEN INCREASED
     Dosage: ONE VIAL IN THE ARM ANNUALLY
     Dates: start: 20050614, end: 20050630

REACTIONS (6)
  - ASTHENIA [None]
  - FATIGUE [None]
  - FEELING ABNORMAL [None]
  - MUSCULOSKELETAL STIFFNESS [None]
  - SYNCOPE [None]
  - VERTIGO [None]
